FAERS Safety Report 9838368 (Version 1)
Quarter: 2014Q1

REPORT INFORMATION
  Report Type: Spontaneous
  Country: CH (occurrence: CH)
  Receive Date: 20140123
  Receipt Date: 20140123
  Transmission Date: 20141002
  Serious: Yes (Other)
  Sender: FDA-Public Use
  Company Number: CH-GLAXOSMITHKLINE-B0962593A

PATIENT
  Sex: Male
  Weight: 60 kg

DRUGS (7)
  1. SERETIDE [Suspect]
     Indication: ASTHMA
     Route: 055
  2. RITALIN [Suspect]
     Indication: ABNORMAL BEHAVIOUR
     Dosage: 20MG PER DAY
     Route: 048
  3. SINGULAIR [Concomitant]
     Dosage: 10MG PER DAY
     Route: 048
  4. VENTOLIN [Concomitant]
  5. AMLODIPINE [Concomitant]
     Dosage: 10MG PER DAY
  6. ENALAPRIL MALEATE [Concomitant]
     Dosage: 20MG PER DAY
  7. OMEPRAZOLE [Concomitant]
     Dosage: 20MG PER DAY
     Route: 048

REACTIONS (1)
  - Hypoglycaemia [Unknown]
